FAERS Safety Report 8507523-4 (Version None)
Quarter: 2012Q3

REPORT INFORMATION
  Report Type: 
  Country: None (occurrence: None)
  Receive Date: 20120713
  Receipt Date: 20120710
  Transmission Date: 20120928
  Serious: Yes (Hospitalization)
  Sender: FDA-Public Use
  Company Number: DE-AMGEN-DEUSP2012042754

PATIENT
  Sex: Female

DRUGS (27)
  1. GRANISETRON HYDROCHLORIDE [Concomitant]
     Dosage: 1 MG, UNK
     Dates: start: 20120612
  2. ALIZAPRIDE [Concomitant]
     Dosage: UNK
     Route: 048
     Dates: start: 20120613
  3. ACETAMINOPHEN [Concomitant]
     Dosage: 1000 MG, QD
     Route: 048
     Dates: start: 20120611
  4. LEVOFLOXACIN [Concomitant]
     Dosage: 500 MG, QD
     Dates: start: 20120617, end: 20120622
  5. POTASSIUM CHLORIDE [Concomitant]
     Dosage: 40 MMOL, UNK
     Route: 048
     Dates: start: 20120622, end: 20120626
  6. OLMESARTAN MEDOXOMIL [Concomitant]
     Dosage: 20 MG, UNK
     Route: 048
  7. TORSEMIDE [Concomitant]
     Dosage: UNK
     Route: 048
     Dates: start: 20120629
  8. CLEMASTIN [Concomitant]
     Dosage: 2 MG, UNK
     Route: 042
     Dates: start: 20120611
  9. ALLOPURINOL [Concomitant]
     Dosage: 150 MG, QD
     Route: 048
     Dates: start: 20120612
  10. ACYCLOVIR [Concomitant]
     Dosage: 1600 MG, UNK
     Route: 048
     Dates: start: 20120612
  11. SIMVASTATIN [Concomitant]
     Dosage: 40 MMOL, UNK
     Route: 048
  12. CARBAMAZEPINE [Concomitant]
     Dosage: 900 MG, UNK
     Route: 048
  13. BUTYLSCOPOLAMINE [Concomitant]
     Dosage: UNK
     Route: 054
     Dates: start: 20120629
  14. CYCLOPHOSPHAMIDE [Suspect]
     Dosage: 1452 MG, Q2WK
     Route: 042
     Dates: start: 20120612
  15. DOXORUBICIN HCL [Suspect]
     Indication: B-CELL LYMPHOMA
     Dosage: 95 MG, Q2WK
     Route: 042
     Dates: start: 20120612
  16. PREDNISOLONE [Suspect]
     Indication: B-CELL LYMPHOMA
     Dosage: 100 MG, UNK
     Dates: start: 20120611
  17. SULPHAMETHIZOLE [Concomitant]
     Dosage: 1920 MG, UNK
     Route: 048
     Dates: start: 20120612
  18. DIPYRONE TAB [Concomitant]
     Route: 048
  19. DIAZEPAM [Concomitant]
     Route: 048
  20. RITUXIMAB [Suspect]
     Indication: B-CELL LYMPHOMA
     Dosage: 700 MG, UNK
     Route: 042
     Dates: start: 20120611
  21. NITRENDIPIN [Concomitant]
     Dosage: 40 MMOL, UNK
     Route: 048
  22. VINCRISTINE [Suspect]
     Indication: B-CELL LYMPHOMA
     Dosage: 3.84 MG, Q2WK
     Dates: start: 20120612
  23. OPIPRAMOL HYDROCHLORIDE [Concomitant]
     Dosage: 50 MG, UNK
     Route: 048
  24. NEULASTA [Suspect]
     Indication: B-CELL LYMPHOMA
     Dosage: 6 MG, UNK
     Route: 058
     Dates: start: 20120615
  25. TRIMETHOPRIM [Concomitant]
     Dosage: 1920 MG, UNK
     Route: 048
     Dates: start: 20120612
  26. BISOPROLOL                         /01166101/ [Concomitant]
     Dosage: UNK
     Route: 048
     Dates: start: 20120617, end: 20120622
  27. RANITIDINE [Concomitant]
     Dosage: 50 MG, UNK
     Route: 042
     Dates: start: 20120611

REACTIONS (1)
  - PRESYNCOPE [None]
